FAERS Safety Report 7919470-7 (Version None)
Quarter: 2011Q4

REPORT INFORMATION
  Report Type: 
  Country: None (occurrence: None)
  Receive Date: 20111116
  Receipt Date: 20111116
  Transmission Date: 20120403
  Serious: Yes (Life-Threatening, Hospitalization)
  Sender: FDA-Public Use
  Company Number: None

PATIENT
  Age: 38 Year
  Sex: Female
  Weight: 109.5 kg

DRUGS (1)
  1. YASMIN [Suspect]
     Indication: ORAL CONTRACEPTION
     Dosage: 1 TABLET ONCE DAILY ORAL
     Route: 048
     Dates: start: 20040426, end: 20111003

REACTIONS (4)
  - DILATATION VENTRICULAR [None]
  - DEPRESSION [None]
  - PULMONARY EMBOLISM [None]
  - HYPOTENSION [None]
